FAERS Safety Report 23742272 (Version 1)
Quarter: 2024Q2

REPORT INFORMATION
  Report Type: Spontaneous
  Country: US (occurrence: US)
  Receive Date: 20240415
  Receipt Date: 20240415
  Transmission Date: 20240716
  Serious: No
  Sender: FDA-Public Use
  Company Number: US-VALIDUS PHARMACEUTICALS LLC-US-VDP-2023-016049

PATIENT

DRUGS (3)
  1. BUMETANIDE [Suspect]
     Active Substance: BUMETANIDE
     Indication: Oedema
     Dosage: UNK
     Route: 065
     Dates: start: 2018
  2. BUMETANIDE [Suspect]
     Active Substance: BUMETANIDE
     Dosage: 3 TABLETS
     Route: 065
     Dates: start: 2019
  3. BUMETANIDE [Suspect]
     Active Substance: BUMETANIDE
     Dosage: UNK
     Route: 065
     Dates: start: 20230311

REACTIONS (2)
  - Drug ineffective [Recovered/Resolved]
  - Product quality issue [Recovered/Resolved]
